FAERS Safety Report 25978342 (Version 2)
Quarter: 2025Q4

REPORT INFORMATION
  Report Type: Spontaneous
  Country: EU (occurrence: EU)
  Receive Date: 20251030
  Receipt Date: 20251208
  Transmission Date: 20260118
  Serious: Yes (Congenital Anomaly, Other)
  Sender: AUROBINDO
  Company Number: EU-EMA-20121106-rhandoop-134616394

PATIENT
  Age: 14 Week
  Sex: Male

DRUGS (4)
  1. CARBOPLATIN [Suspect]
     Active Substance: CARBOPLATIN
     Indication: Breast cancer
     Dosage: UNK (AUC 6 EVERY 3 WEEKS)
  2. TAXOTERE [Suspect]
     Active Substance: DOCETAXEL
     Indication: Breast cancer
     Dosage: 1 MILLIGRAM/SQ. METER, 3 WEEKS
  3. TAXOTERE [Suspect]
     Active Substance: DOCETAXEL
     Dosage: 75 MG/M2, 3 WEEKS
  4. HERCEPTIN [Suspect]
     Active Substance: TRASTUZUMAB
     Indication: Breast cancer
     Dosage: 4 MILLIGRAM/KILOGRAM, EVERY WEEK

REACTIONS (7)
  - Foetal growth restriction [Not Recovered/Not Resolved]
  - Low birth weight baby [Unknown]
  - Foetal exposure during pregnancy [Unknown]
  - Growth retardation [Unknown]
  - Premature baby [Recovered/Resolved]
  - Renal failure [Recovered/Resolved]
  - Off label use [Unknown]
